FAERS Safety Report 4948900-8 (Version None)
Quarter: 2006Q1

REPORT INFORMATION
  Report Type: 
  Country: None (occurrence: None)
  Receive Date: 20060321
  Receipt Date: 20050823
  Transmission Date: 20060701
  Serious: Yes (Hospitalization, Other)
  Sender: FDA-Public Use
  Company Number: PHNR2005AU01305

PATIENT
  Age: 66 Year
  Sex: Male

DRUGS (8)
  1. SPIRIVA [Concomitant]
     Indication: CHRONIC OBSTRUCTIVE PULMONARY DISEASE
  2. CLOZARIL [Suspect]
     Dosage: 0 - 150 MG/DAY
     Route: 048
     Dates: start: 20050728, end: 20050822
  3. OSTELIN [Concomitant]
     Indication: OSTEOPOROSIS
  4. CALTRATE [Concomitant]
     Indication: OSTEOPOROSIS
  5. LACTULOSE [Concomitant]
  6. ASPIRIN [Concomitant]
  7. THIAMINE [Concomitant]
  8. OMEPRAZOLE [Concomitant]
     Indication: GASTROOESOPHAGEAL REFLUX DISEASE

REACTIONS (7)
  - BRONCHIECTASIS [None]
  - HAEMOPHILUS INFECTION [None]
  - LEUKOPENIA [None]
  - MYOCARDITIS [None]
  - NEUTROPENIA [None]
  - PYREXIA [None]
  - TROPONIN INCREASED [None]
